FAERS Safety Report 24092333 (Version 2)
Quarter: 2024Q3

REPORT INFORMATION
  Report Type: Spontaneous
  Country: US (occurrence: US)
  Receive Date: 20240715
  Receipt Date: 20240722
  Transmission Date: 20241017
  Serious: Yes (Hospitalization, Disabling, Other)
  Sender: PIRAMAL
  Company Number: US-MLMSERVICE-20240628-PI116687-00072-1

PATIENT

DRUGS (7)
  1. MORPHINE SULFATE [Suspect]
     Active Substance: MORPHINE SULFATE
     Indication: Spinal anaesthesia
     Dosage: SINGLE-SHOT WITH 25-GAUGE PENCIL-TIP NEEDLE
     Route: 008
  2. FENTANYL [Suspect]
     Active Substance: FENTANYL\FENTANYL CITRATE
     Indication: Spinal anaesthesia
     Dosage: SINGLE-SHOT WITH 25-GAUGE PENCIL-TIP NEEDLE
     Route: 008
  3. BUPIVACAINE [Suspect]
     Active Substance: BUPIVACAINE
     Indication: Spinal anaesthesia
     Dosage: SINGLE-SHOT WITH 25-GAUGE PENCIL-TIP NEEDLE
     Route: 008
  4. GABAPENTIN [Concomitant]
     Active Substance: GABAPENTIN
     Indication: Product used for unknown indication
     Dosage: UNK
  5. ASPIRIN [Concomitant]
     Active Substance: ASPIRIN
     Indication: Product used for unknown indication
     Dosage: 81 MILLIGRAM DAILY
  6. METHYLPREDNISOLONE [Concomitant]
     Active Substance: METHYLPREDNISOLONE
     Indication: Product used for unknown indication
     Dosage: 1 GRAM
     Route: 042
  7. OMEPRAZOLE [Concomitant]
     Active Substance: OMEPRAZOLE
     Indication: Product used for unknown indication
     Dosage: UNK

REACTIONS (4)
  - Spinal cord infarction [Recovering/Resolving]
  - Anterior spinal artery syndrome [Recovering/Resolving]
  - Maternal exposure during delivery [Unknown]
  - Product use issue [Unknown]
